FAERS Safety Report 9880415 (Version 1)
Quarter: 2014Q1

REPORT INFORMATION
  Report Type: Spontaneous
  Country: US (occurrence: None)
  Receive Date: 20140206
  Receipt Date: 20140206
  Transmission Date: 20141002
  Serious: Yes (Other)
  Sender: FDA-Public Use
  Company Number: None

PATIENT
  Age: 41 Year
  Sex: Female
  Weight: 63.5 kg

DRUGS (1)
  1. FLUCONAZOLE [Suspect]
     Indication: FUNGAL INFECTION
     Route: 048
     Dates: start: 20131229, end: 20131229

REACTIONS (6)
  - Urticaria [None]
  - Eyelid oedema [None]
  - Eyelids pruritus [None]
  - Eyelid irritation [None]
  - Skin exfoliation [None]
  - Erythema of eyelid [None]
